FAERS Safety Report 18917192 (Version 1)
Quarter: 2021Q1

REPORT INFORMATION
  Report Type: Spontaneous
  Country: FR (occurrence: FR)
  Receive Date: 20210219
  Receipt Date: 20210219
  Transmission Date: 20210420
  Serious: Yes (Other)
  Sender: FDA-Public Use
  Company Number: FR-GUERBET-FR-20210064

PATIENT
  Age: 34 Year
  Sex: Female
  Weight: 54.5 kg

DRUGS (1)
  1. DOTAREM [Suspect]
     Active Substance: GADOTERATE MEGLUMINE
     Indication: PRODUCT USED FOR UNKNOWN INDICATION
     Route: 042
     Dates: start: 20201124, end: 20201124

REACTIONS (5)
  - Neck pain [Not Recovered/Not Resolved]
  - Paraesthesia [Not Recovered/Not Resolved]
  - Transfusion related complication [Not Recovered/Not Resolved]
  - Injection site pain [Not Recovered/Not Resolved]
  - Contrast media reaction [Not Recovered/Not Resolved]

NARRATIVE: CASE EVENT DATE: 20201124
